FAERS Safety Report 6963425-6 (Version None)
Quarter: 2010Q3

REPORT INFORMATION
  Report Type: 
  Country: None (occurrence: None)
  Receive Date: 20100902
  Receipt Date: 20100827
  Transmission Date: 20110219
  Serious: Yes (Other)
  Sender: FDA-Public Use
  Company Number: A0879034A

PATIENT
  Age: 17 Year
  Sex: Female

DRUGS (3)
  1. LAMOTRIGINE [Suspect]
     Indication: BIPOLAR DISORDER
     Dosage: 12.5MG UNKNOWN
     Dates: start: 20100826, end: 20100826
  2. UNSPECIFIED MEDICATION [Concomitant]
  3. CHLORPHENAMINE [Concomitant]

REACTIONS (6)
  - CONFUSIONAL STATE [None]
  - HALLUCINATION [None]
  - LOSS OF CONSCIOUSNESS [None]
  - NAUSEA [None]
  - SALIVARY HYPERSECRETION [None]
  - VOMITING [None]
